FAERS Safety Report 7742680-9 (Version None)
Quarter: 2011Q3

REPORT INFORMATION
  Report Type: 
  Country: None (occurrence: None)
  Receive Date: 20110908
  Receipt Date: 20110908
  Transmission Date: 20111222
  Serious: Yes (Hospitalization)
  Sender: FDA-Public Use
  Company Number: None

PATIENT
  Sex: Male
  Weight: 78.3 kg

DRUGS (3)
  1. PENTOSTATIN [Suspect]
     Dosage: 7.6 MG
  2. CYCLOPHOSPHAMIDE [Suspect]
     Dosage: 1140 MG
  3. RITUXIMAB (MOAB C2B8 ANTI CD20, CHIMERIC) [Suspect]
     Dosage: 712 MG

REACTIONS (3)
  - HEPATIC CIRRHOSIS [None]
  - TREATMENT FAILURE [None]
  - LEUKAEMIC INFILTRATION HEPATIC [None]
